FAERS Safety Report 24528069 (Version 2)
Quarter: 2024Q4

REPORT INFORMATION
  Report Type: Spontaneous
  Country: US (occurrence: US)
  Receive Date: 20241021
  Receipt Date: 20241025
  Transmission Date: 20250115
  Serious: No
  Sender: AMGEN
  Company Number: US-AMGEN-USASP2024207591

PATIENT
  Age: 69 Year
  Sex: Female

DRUGS (15)
  1. PEGLOTICASE [Suspect]
     Active Substance: PEGLOTICASE
     Indication: Gouty tophus
     Dosage: 8 MILLIGRAM, Q2WK, BIWEEKLY
     Route: 040
     Dates: start: 20210708
  2. PEGLOTICASE [Suspect]
     Active Substance: PEGLOTICASE
     Dosage: 8 MILLIGRAM, Q2WK, BIWEEKLY, INFUSION
     Route: 040
     Dates: end: 20220428
  3. PREDNISONE [Concomitant]
     Active Substance: PREDNISONE
     Dosage: 15 MILLIGRAM, QD
     Route: 048
  4. FUROSEMIDE [Concomitant]
     Active Substance: FUROSEMIDE
     Dosage: 20 MILLIGRAM, BID
     Route: 048
  5. COLCHICINE [Concomitant]
     Active Substance: COLCHICINE
     Dosage: 0.6 MILLIGRAM, MWF
     Route: 048
  6. MYCOPHENOLATE MOFETIL [Concomitant]
     Active Substance: MYCOPHENOLATE MOFETIL
     Dosage: 500 MILLIGRAM, BID
     Route: 048
  7. DULAGLUTIDE [Concomitant]
     Active Substance: DULAGLUTIDE
     Dosage: UNK UNK, QWK, 1.5 MG/0.5
     Route: 058
  8. LISINOPRIL [Concomitant]
     Active Substance: LISINOPRIL
     Dosage: 5 MILLIGRAM, QD
     Route: 048
  9. MELATONIN [Concomitant]
     Active Substance: MELATONIN
     Dosage: 3 MILLIGRAM, QD
     Route: 048
  10. METFORMIN HYDROCHLORIDE [Concomitant]
     Active Substance: METFORMIN HYDROCHLORIDE
     Dosage: 1000 MILLIGRAM, BID
     Route: 048
  11. SIMVASTATIN [Concomitant]
     Active Substance: SIMVASTATIN
     Dosage: 40 MILLIGRAM, QD
     Route: 048
  12. CALCIUM [Concomitant]
     Active Substance: CALCIUM
     Dosage: UNK UNK, QD
     Route: 048
  13. MAGNESIUM [Concomitant]
     Active Substance: MAGNESIUM
     Dosage: UNK UNK, QD
     Route: 048
  14. ZINC [Concomitant]
     Active Substance: ZINC
     Dosage: UNK UNK, QD
     Route: 048
  15. VITAMIN D [Concomitant]
     Active Substance: VITAMIN D NOS
     Dosage: 50 MICROGRAM, QD

REACTIONS (3)
  - Arthralgia [Recovered/Resolved]
  - Fall [Recovered/Resolved]
  - Blood uric acid decreased [Unknown]

NARRATIVE: CASE EVENT DATE: 20211013
